FAERS Safety Report 19486803 (Version 1)
Quarter: 2021Q3

REPORT INFORMATION
  Report Type: Spontaneous
  Country: US (occurrence: US)
  Receive Date: 20210702
  Receipt Date: 20210702
  Transmission Date: 20211014
  Serious: Yes (Other)
  Sender: FDA-Public Use
  Company Number: US-KALA PHARAMACEUTICALS-2021KLA00063

PATIENT
  Age: 82 Year
  Sex: Male

DRUGS (1)
  1. INVELTYS [Suspect]
     Active Substance: LOTEPREDNOL ETABONATE
     Dosage: IN RIGHT EYE
     Route: 047
     Dates: start: 20210621, end: 20210621

REACTIONS (4)
  - Blindness [Unknown]
  - Injury corneal [Unknown]
  - Corneal oedema [Unknown]
  - Visual impairment [Unknown]

NARRATIVE: CASE EVENT DATE: 20210621
